FAERS Safety Report 6535004-6 (Version None)
Quarter: 2010Q1

REPORT INFORMATION
  Report Type: 
  Country: None (occurrence: None)
  Receive Date: 20100112
  Receipt Date: 20100108
  Transmission Date: 20100710
  Serious: Yes (Other)
  Sender: FDA-Public Use
  Company Number: US-MERCK-0908USA01849

PATIENT
  Age: 62 Year
  Sex: Female
  Weight: 47 kg

DRUGS (6)
  1. FOSAMAX [Suspect]
     Indication: OSTEOPOROSIS
     Route: 048
     Dates: start: 20050301, end: 20050801
  2. FOSAMAX [Suspect]
     Route: 048
     Dates: end: 20080101
  3. FOSAMAX [Suspect]
     Route: 048
     Dates: start: 20090101
  4. NITROGLYCERIN [Concomitant]
     Indication: PROPHYLAXIS
     Route: 060
     Dates: start: 19990101, end: 20090101
  5. OMEPRAZOLE [Concomitant]
     Route: 065
     Dates: start: 19990101, end: 20090701
  6. CELEBREX [Concomitant]
     Route: 048
     Dates: end: 20060101

REACTIONS (43)
  - ABSCESS NECK [None]
  - ALOPECIA [None]
  - BALANCE DISORDER [None]
  - BONE DENSITY DECREASED [None]
  - CARPAL TUNNEL SYNDROME [None]
  - CELLULITIS [None]
  - CONJUNCTIVITIS [None]
  - CONTUSION [None]
  - CYSTITIS [None]
  - DENTAL CARIES [None]
  - DIZZINESS [None]
  - DYSPEPSIA [None]
  - DYSURIA [None]
  - EYE PAIN [None]
  - FALL [None]
  - GINGIVAL BLEEDING [None]
  - GINGIVAL DISORDER [None]
  - GINGIVAL RECESSION [None]
  - HAND FRACTURE [None]
  - HYPOKALAEMIA [None]
  - INSOMNIA [None]
  - JOINT SPRAIN [None]
  - MICTURITION URGENCY [None]
  - NASAL POLYPS [None]
  - NEUROPATHY PERIPHERAL [None]
  - ORAL DISORDER [None]
  - OSTEONECROSIS [None]
  - PERIODONTAL DISEASE [None]
  - PERNICIOUS ANAEMIA [None]
  - POLLAKIURIA [None]
  - POLYARTHRITIS [None]
  - RHEUMATOID ARTHRITIS [None]
  - SINUSITIS [None]
  - SKIN LACERATION [None]
  - SKIN ULCER [None]
  - SPINAL DISORDER [None]
  - SPINAL FRACTURE [None]
  - STRESS URINARY INCONTINENCE [None]
  - TOOTH DISORDER [None]
  - URINARY TRACT INFECTION [None]
  - VAGINAL HAEMORRHAGE [None]
  - VULVOVAGINAL MYCOTIC INFECTION [None]
  - VULVOVAGINITIS [None]
